FAERS Safety Report 12284121 (Version 1)
Quarter: 2016Q2

REPORT INFORMATION
  Report Type: Spontaneous
  Country: US (occurrence: US)
  Receive Date: 20160419
  Receipt Date: 20160419
  Transmission Date: 20160815
  Serious: No
  Sender: FDA-Public Use
  Company Number: US-TEVA-649668USA

PATIENT
  Sex: Female

DRUGS (2)
  1. COPAXONE [Suspect]
     Active Substance: GLATIRAMER ACETATE
     Indication: MULTIPLE SCLEROSIS
     Route: 058
     Dates: start: 20151120
  2. MELOXICAM. [Suspect]
     Active Substance: MELOXICAM
     Dosage: UNKNOWN FORM STRENGTH

REACTIONS (2)
  - Peripheral swelling [Recovered/Resolved]
  - Abdominal distension [Unknown]
